FAERS Safety Report 9557308 (Version 1)
Quarter: 2013Q3

REPORT INFORMATION
  Report Type: Spontaneous
  Country: FR (occurrence: FR)
  Receive Date: 20130926
  Receipt Date: 20130926
  Transmission Date: 20140515
  Serious: Yes (Other)
  Sender: FDA-Public Use
  Company Number: FR-009507513-1309FRA009717

PATIENT
  Sex: 0

DRUGS (1)
  1. JANUMET [Suspect]

REACTIONS (1)
  - Lipase increased [Recovering/Resolving]
